FAERS Safety Report 8277346-2 (Version None)
Quarter: 2012Q2

REPORT INFORMATION
  Report Type: 
  Country: None (occurrence: None)
  Receive Date: 20120412
  Receipt Date: 20120410
  Transmission Date: 20120825
  Serious: Yes (Hospitalization)
  Sender: FDA-Public Use
  Company Number: JP-PFIZER INC-2012082327

PATIENT
  Age: 47 Year
  Sex: Female
  Weight: 41.8 kg

DRUGS (1)
  1. VARENICLINE TARTRATE [Suspect]
     Indication: SMOKING CESSATION THERAPY
     Dosage: 1 TABLET, 2X/DAY
     Route: 048
     Dates: start: 20120201

REACTIONS (7)
  - DRUG ERUPTION [None]
  - MUSCULAR WEAKNESS [None]
  - GLYCOSYLATED HAEMOGLOBIN INCREASED [None]
  - CEREBRAL INFARCTION [None]
  - MEAN CELL VOLUME INCREASED [None]
  - ECZEMA [None]
  - BLOOD GLUCOSE INCREASED [None]
